FAERS Safety Report 23965667 (Version 1)
Quarter: 2024Q2

REPORT INFORMATION
  Report Type: Spontaneous
  Country: US (occurrence: US)
  Receive Date: 20240612
  Receipt Date: 20240612
  Transmission Date: 20240716
  Serious: Yes (Other)
  Sender: FDA-Public Use
  Company Number: US-IMMUNOGEN, INC.-US-IMGN-24-00282

PATIENT
  Sex: Female

DRUGS (2)
  1. ELAHERE [Suspect]
     Active Substance: MIRVETUXIMAB SORAVTANSINE-GYNX
     Indication: Product used for unknown indication
     Dosage: 6 MILLIGRAM/KILOGRAM, CYCLIC, 9 TOTAL CYCLES
     Route: 042
  2. ELAHERE [Suspect]
     Active Substance: MIRVETUXIMAB SORAVTANSINE-GYNX
     Dosage: 4 MILLIGRAM/KILOGRAM, SUBSEQUENT CYCLIC, 9 TOTAL CYCLES
     Route: 042

REACTIONS (3)
  - Disease progression [Unknown]
  - Abdominal pain [Unknown]
  - Abdominal discomfort [Unknown]
